FAERS Safety Report 5053902-X (Version None)
Quarter: 2006Q2

REPORT INFORMATION
  Report Type: 
  Country: None (occurrence: None)
  Receive Date: 20060614
  Receipt Date: 20060328
  Transmission Date: 20061013
  Serious: Yes (Other)
  Sender: FDA-Public Use
  Company Number: 442459

PATIENT
  Age: 52 Year
  Sex: Female

DRUGS (5)
  1. BONIVA [Suspect]
     Indication: DRUG USE FOR UNKNOWN INDICATION
     Dosage: ORAL
     Route: 048
     Dates: start: 20060315, end: 20060315
  2. HYZAAR [Concomitant]
  3. EFFEXOR [Concomitant]
  4. NEXIUM [Concomitant]
  5. BUSPAR [Concomitant]

REACTIONS (2)
  - BONE PAIN [None]
  - MYALGIA [None]
